FAERS Safety Report 4502760-8 (Version None)
Quarter: 2004Q4

REPORT INFORMATION
  Report Type: 
  Country: None (occurrence: None)
  Receive Date: 20041116
  Receipt Date: 20041109
  Transmission Date: 20050328
  Serious: Yes (Other)
  Sender: FDA-Public Use
  Company Number: US-MERCK-0411USA01736

PATIENT
  Age: 79 Year
  Sex: Male

DRUGS (9)
  1. VIOXX [Suspect]
     Route: 048
  2. AVAPRO [Concomitant]
     Route: 065
  3. CARDURA [Concomitant]
     Route: 065
  4. NORVASC [Concomitant]
     Route: 065
  5. PLAVIX [Concomitant]
     Route: 065
  6. PLAQUENIL [Concomitant]
     Route: 065
  7. LASIX [Concomitant]
     Route: 065
  8. K-DUR 10 [Concomitant]
     Route: 065
  9. ULTRACET [Concomitant]
     Route: 065

REACTIONS (1)
  - CEREBROVASCULAR ACCIDENT [None]
